FAERS Safety Report 13881933 (Version 2)
Quarter: 2017Q3

REPORT INFORMATION
  Report Type: Spontaneous
  Country: IT (occurrence: IT)
  Receive Date: 20170818
  Receipt Date: 20170913
  Transmission Date: 20171127
  Serious: Yes (Other)
  Sender: FDA-Public Use
  Company Number: IT-CONCORDIA PHARMACEUTICALS INC.-GSH201708-004737

PATIENT
  Age: 37 Year
  Sex: Female

DRUGS (4)
  1. PLAQUENIL [Suspect]
     Active Substance: HYDROXYCHLOROQUINE SULFATE
     Indication: ARTHROPATHY
     Route: 048
     Dates: start: 20170727
  2. BASSADO [Suspect]
     Active Substance: DOXYCYCLINE HYCLATE
     Indication: ARTHROPATHY
     Route: 048
     Dates: start: 20170727
  3. DICLOREUM [Suspect]
     Active Substance: DICLOFENAC SODIUM
     Indication: ARTHROPATHY
     Route: 048
     Dates: start: 20170727
  4. MEDROL [Suspect]
     Active Substance: METHYLPREDNISOLONE
     Indication: ARTHROPATHY
     Route: 048
     Dates: start: 20170727

REACTIONS (2)
  - Urticaria [Recovered/Resolved]
  - Mechanical urticaria [Recovered/Resolved]

NARRATIVE: CASE EVENT DATE: 20170731
